FAERS Safety Report 7304739-X (Version None)
Quarter: 2011Q1

REPORT INFORMATION
  Report Type: 
  Country: None (occurrence: None)
  Receive Date: 20110222
  Receipt Date: 20110218
  Transmission Date: 20110831
  Serious: No
  Sender: FDA-Public Use
  Company Number: US-PFIZER INC-2011036878

PATIENT
  Sex: Male
  Weight: 80.7 kg

DRUGS (4)
  1. CHANTIX [Suspect]
     Indication: SMOKING CESSATION THERAPY
     Dosage: 0.5 MG, 1X/DAY
     Route: 048
     Dates: start: 20100101
  2. WARFARIN [Concomitant]
     Dosage: 6 MG, 1X/DAY
     Route: 048
  3. CLONAZEPAM [Concomitant]
     Indication: SLEEP DISORDER
     Dosage: 15 MG, UNK
     Route: 048
  4. ATRIPLA [Concomitant]
     Indication: HIV TEST POSITIVE
     Dosage: UNK

REACTIONS (2)
  - NIGHTMARE [None]
  - INSOMNIA [None]
